FAERS Safety Report 20695433 (Version 1)
Quarter: 2022Q2

REPORT INFORMATION
  Report Type: Spontaneous
  Country: US (occurrence: None)
  Receive Date: 20220408
  Receipt Date: 20220408
  Transmission Date: 20220721
  Serious: No
  Sender: FDA-Public Use
  Company Number: None

PATIENT
  Sex: Female

DRUGS (3)
  1. MODAFINIL [Suspect]
     Active Substance: MODAFINIL
     Indication: Circadian rhythm sleep disorder
     Dosage: FREQUENCY : DAILY;?
     Route: 048
     Dates: start: 20140929, end: 20191031
  2. MODAFINIL [Suspect]
     Active Substance: MODAFINIL
     Indication: Circadian rhythm sleep disorder
     Dosage: FREQUENCY : DAILY;?
     Route: 048
  3. MODAFINIL [Concomitant]
     Active Substance: MODAFINIL
     Dates: start: 20140929, end: 20191031

REACTIONS (2)
  - Product substitution issue [None]
  - Headache [None]
